FAERS Safety Report 8245941-2 (Version None)
Quarter: 2012Q1

REPORT INFORMATION
  Report Type: 
  Country: None (occurrence: None)
  Receive Date: 20120330
  Receipt Date: 20120322
  Transmission Date: 20120608
  Serious: No
  Sender: FDA-Public Use
  Company Number: US-PFIZER INC-2012075459

PATIENT
  Sex: Female

DRUGS (3)
  1. AMBRISENTAN [Suspect]
     Indication: PULMONARY HYPERTENSION
     Dosage: 5 MG, UNK
     Route: 048
     Dates: start: 20120221
  2. SILDENAFIL CITRATE [Suspect]
     Dosage: UNK
  3. TYVASO [Suspect]
     Dosage: UNK

REACTIONS (1)
  - DIZZINESS [None]
